FAERS Safety Report 5284399-2 (Version None)
Quarter: 2007Q1

REPORT INFORMATION
  Report Type: 
  Country: None (occurrence: None)
  Receive Date: 20070330
  Receipt Date: 20070330
  Transmission Date: 20070707
  Serious: Yes (Hospitalization)
  Sender: FDA-Public Use
  Company Number: None

PATIENT
  Age: 85 Year
  Sex: Male
  Weight: 92.5338 kg

DRUGS (19)
  1. DIPHENHYDRAMINE HCL [Suspect]
     Indication: RASH PRURITIC
     Dosage: 25 MG BID PO
     Route: 048
     Dates: start: 20060501, end: 20070226
  2. ALPRAZOLAM [Suspect]
     Indication: ANXIETY
     Dosage: 0.25 MG BID PO
     Route: 048
     Dates: start: 20060911, end: 20070226
  3. ASPIRIN [Concomitant]
  4. NPH ILETIN II [Concomitant]
  5. DOXYCYCLINE [Concomitant]
  6. FLUOCINONIDE [Concomitant]
  7. SIMVASTATIN [Concomitant]
  8. DIPHENHYDRAMINE HCL [Concomitant]
  9. TERAZOSIN HCL [Concomitant]
  10. FINASTERIDE [Concomitant]
  11. LACTULOSE [Concomitant]
  12. REGULAR INSULIN [Concomitant]
  13. TOLTERODINE [Concomitant]
  14. SERTRAINE [Concomitant]
  15. OMEPRAZOLE [Concomitant]
  16. METOPROLOL SUCCINATE [Concomitant]
  17. NAICINAMIDE [Concomitant]
  18. ALPRAZOLAM [Concomitant]
  19. HYDROXYZINE PAMOATE [Concomitant]

REACTIONS (11)
  - BALANCE DISORDER [None]
  - BLOOD GLUCOSE DECREASED [None]
  - CONSTIPATION [None]
  - COUGH [None]
  - DYSPNOEA [None]
  - HALLUCINATION, VISUAL [None]
  - MENTAL STATUS CHANGES [None]
  - MUSCULOSKELETAL STIFFNESS [None]
  - NIGHT SWEATS [None]
  - RESTLESSNESS [None]
  - URINE OUTPUT DECREASED [None]
